FAERS Safety Report 5806322-1 (Version None)
Quarter: 2008Q3

REPORT INFORMATION
  Report Type: 
  Country: None (occurrence: None)
  Receive Date: 20080708
  Receipt Date: 20040928
  Transmission Date: 20090109
  Serious: Yes (Other)
  Sender: FDA-Public Use
  Company Number: US023674

PATIENT
  Age: 33 Year
  Sex: Female

DRUGS (2)
  1. TIAGABINE HCL [Suspect]
     Indication: PARTIAL SEIZURES
     Dosage: 16 MG DAILY ORAL
     Route: 048
  2. VALPROIC ACID [Concomitant]

REACTIONS (3)
  - ABORTION SPONTANEOUS [None]
  - DRUG EXPOSURE DURING PREGNANCY [None]
  - PREGNANCY [None]
